FAERS Safety Report 16774830 (Version 3)
Quarter: 2020Q1

REPORT INFORMATION
  Report Type: Spontaneous
  Country: US (occurrence: US)
  Receive Date: 20190905
  Receipt Date: 20200113
  Transmission Date: 20200409
  Serious: Yes (Hospitalization)
  Sender: FDA-Public Use
  Company Number: US-GW PHARMA-201908USGW3118

PATIENT

DRUGS (12)
  1. EPIDIOLEX [Suspect]
     Active Substance: CANNABIDIOL
     Indication: CORTICAL DYSPLASIA
     Dosage: 20.14 MG/KG, 570 MILLIGRAM, BID
     Route: 048
     Dates: start: 20190815, end: 2019
  2. ONFI [Concomitant]
     Active Substance: CLOBAZAM
     Indication: GENERALISED TONIC-CLONIC SEIZURE
     Dosage: 2.5 MILLIGRAM, QD (QHS)
     Route: 048
     Dates: start: 20190711, end: 201907
  3. ZONISAMIDE. [Concomitant]
     Active Substance: ZONISAMIDE
     Dosage: 100 MILLIGRAM, QD (QHS)
     Route: 048
     Dates: start: 20190724, end: 201907
  4. ONFI [Concomitant]
     Active Substance: CLOBAZAM
     Dosage: 2.5 MILLIGRAM, QD (QHS)
     Route: 048
     Dates: start: 20190815
  5. ONFI [Concomitant]
     Active Substance: CLOBAZAM
     Dosage: 2.5 MILLIGRAM, QD (QHS)
     Route: 048
     Dates: start: 20190724, end: 201907
  6. MARIJUANA [Concomitant]
     Active Substance: CANNABIS SATIVA SUBSP. INDICA TOP
     Indication: PRODUCT USED FOR UNKNOWN INDICATION
     Dosage: 1 MG NANOTINCTURE
     Route: 065
  7. LEVETIRACETAM. [Concomitant]
     Active Substance: LEVETIRACETAM
     Indication: PRODUCT USED FOR UNKNOWN INDICATION
     Dosage: UNK
     Route: 065
  8. EPIDIOLEX [Suspect]
     Active Substance: CANNABIDIOL
     Dosage: 17.67 MG/KG, 500 MILLIGRAM, BID
     Route: 048
     Dates: start: 2019
  9. CANNABIDIOL [Concomitant]
     Active Substance: CANNABIDIOL
     Indication: GENERALISED TONIC-CLONIC SEIZURE
     Dosage: UNK
     Route: 065
  10. EPIDIOLEX [Suspect]
     Active Substance: CANNABIDIOL
     Indication: EPILEPTIC ENCEPHALOPATHY
     Dosage: 10 MG/KG, 280 MILLIGRAM, BID
     Route: 048
     Dates: start: 20190801, end: 201908
  11. ONFI [Concomitant]
     Active Substance: CLOBAZAM
     Dosage: 2.5 MILLIGRAM, QD (QHS)
     Route: 048
     Dates: start: 20190801, end: 201908
  12. ZONISAMIDE. [Concomitant]
     Active Substance: ZONISAMIDE
     Indication: GENERALISED TONIC-CLONIC SEIZURE
     Dosage: 100 MILLIGRAM, QD (QHS)
     Route: 048
     Dates: start: 20190711, end: 201907

REACTIONS (5)
  - Diarrhoea [Not Recovered/Not Resolved]
  - Generalised tonic-clonic seizure [Not Recovered/Not Resolved]
  - Panic attack [Recovered/Resolved]
  - Weight increased [Unknown]
  - Product use in unapproved indication [Unknown]

NARRATIVE: CASE EVENT DATE: 201908
